FAERS Safety Report 9912623 (Version 3)
Quarter: 2014Q2

REPORT INFORMATION
  Report Type: Spontaneous
  Country: US (occurrence: None)
  Receive Date: 20140212
  Receipt Date: 20140619
  Transmission Date: 20141212
  Serious: Yes (Other)
  Sender: FDA-Public Use
  Company Number: 2014-US-001497

PATIENT
  Age: 64 Year
  Sex: Female

DRUGS (11)
  1. XYREM (SODIUM OXYBATE) ORAL SOLUTION, 500 MG/ML [Suspect]
     Indication: NARCOLEPSY
     Route: 048
     Dates: start: 201309, end: 2013
  2. XYREM (SODIUM OXYBATE) ORAL SOLUTION, 500 MG/ML [Suspect]
     Indication: NARCOLEPSY
     Route: 048
     Dates: start: 201309, end: 2013
  3. ALL OTHER THERAPEUTIC PRODUCTS (UNSPECIFIED MEDICATION) [Suspect]
     Indication: PRODUCT USED FOR UNKNOWN INDICATION
  4. METOPROLOL (METOPROLOL) [Suspect]
     Indication: PRODUCT USED FOR UNKNOWN INDICATION
     Dates: start: 2014
  5. METFORMIN (METFORMIN) [Concomitant]
  6. GLIPIZIDE (GLIPIZIDE) [Concomitant]
  7. SIMVASTATIN (SIMVASTATIN) [Suspect]
     Indication: PRODUCT USED FOR UNKNOWN INDICATION
     Dates: start: 2014
  8. LISINOPRIL (LISINOPRIL) [Suspect]
     Indication: PRODUCT USED FOR UNKNOWN INDICATION
     Dates: start: 2014
  9. LAMICTAL (LAMOTRIGINE) [Suspect]
     Indication: PAIN
     Dates: start: 2014
  10. PROVIGIL (MODAFINIL) [Suspect]
     Indication: PRODUCT USED FOR UNKNOWN INDICATION
  11. CYMBALTA [Concomitant]

REACTIONS (18)
  - Cerebrovascular accident [None]
  - Chest pain [None]
  - Neck pain [None]
  - Pain in extremity [None]
  - Nausea [None]
  - Weight decreased [None]
  - Cardiac disorder [None]
  - Muscle tightness [None]
  - Malaise [None]
  - Pain [None]
  - Pain in extremity [None]
  - Dizziness [None]
  - Headache [None]
  - Musculoskeletal pain [None]
  - Intentional product misuse [None]
  - Drug dose omission [None]
  - Rapid eye movements sleep abnormal [None]
  - Palpitations [None]
